FAERS Safety Report 13230874 (Version 4)
Quarter: 2017Q2

REPORT INFORMATION
  Report Type: Report from Study
  Country: BR (occurrence: BR)
  Receive Date: 20170214
  Receipt Date: 20170621
  Transmission Date: 20170830
  Serious: Yes (Death, Life-Threatening, Hospitalization, Other)
  Sender: FDA-Public Use
  Company Number: BR-AMGEN-BRANI2017021934

PATIENT
  Age: 15 Year
  Sex: Male
  Weight: 50 kg

DRUGS (10)
  1. MEROPENEM. [Concomitant]
     Active Substance: MEROPENEM
     Dosage: 8/8
     Route: 042
     Dates: start: 20170201
  2. METHOTREXATE. [Concomitant]
     Active Substance: METHOTREXATE
     Dosage: UNK
     Route: 037
     Dates: start: 20170104
  3. VANCOMYCIN [Concomitant]
     Active Substance: VANCOMYCIN
     Dosage: 6/6
     Route: 042
     Dates: start: 20170131, end: 20170203
  4. VINCRISTINE [Concomitant]
     Active Substance: VINCRISTINE
     Dosage: WEEKLY FIVE DOSES
  5. VANCOMYCIN [Concomitant]
     Active Substance: VANCOMYCIN
  6. PREDNISONE. [Concomitant]
     Active Substance: PREDNISONE
     Dosage: 60 MG/M2/D FOR FOUR WEEKS
  7. BLINATUMOMAB [Suspect]
     Active Substance: BLINATUMOMAB
     Indication: B PRECURSOR TYPE ACUTE LEUKAEMIA
     Dosage: 9 MUG, QD
     Route: 042
     Dates: start: 20170131
  8. MEROPENEM. [Concomitant]
     Active Substance: MEROPENEM
     Dosage: UNK
  9. CEFEPIME [Concomitant]
     Active Substance: CEFEPIME HYDROCHLORIDE
     Dosage: 8/8
     Route: 042
     Dates: start: 20170131, end: 20170201
  10. CYTARABINE. [Concomitant]
     Active Substance: CYTARABINE
     Dosage: UNK
     Dates: start: 20170104

REACTIONS (6)
  - Respiratory distress [Fatal]
  - Staphylococcal bacteraemia [Recovered/Resolved]
  - Sinusitis [Not Recovered/Not Resolved]
  - Pyrexia [Unknown]
  - Papilloedema [Unknown]
  - Cellulitis gangrenous [Not Recovered/Not Resolved]

NARRATIVE: CASE EVENT DATE: 20170131
